FAERS Safety Report 23692451 (Version 1)
Quarter: 2024Q2

REPORT INFORMATION
  Report Type: Spontaneous
  Country: CN (occurrence: CN)
  Receive Date: 20240401
  Receipt Date: 20240401
  Transmission Date: 20240716
  Serious: Yes (Hospitalization)
  Sender: FDA-Public Use
  Company Number: CN-002147023-NVSC2024CN067872

PATIENT
  Age: 46 Year
  Sex: Female
  Weight: 60 kg

DRUGS (3)
  1. TEGRETOL [Suspect]
     Active Substance: CARBAMAZEPINE
     Indication: Depression
     Dosage: 200 MG, BID
     Route: 048
     Dates: start: 20240220
  2. DEXAMETHASONE [Concomitant]
     Active Substance: DEXAMETHASONE
     Indication: Depression
     Dosage: 5 MG
     Route: 065
  3. LEVOFLOXACIN [Concomitant]
     Active Substance: LEVOFLOXACIN
     Indication: Depression
     Dosage: 0.5 G
     Route: 065

REACTIONS (7)
  - Drug eruption [Recovering/Resolving]
  - Erythema [Not Recovered/Not Resolved]
  - Pruritus [Unknown]
  - Face oedema [Unknown]
  - Body temperature increased [Unknown]
  - Skin lesion [Recovering/Resolving]
  - Product use in unapproved indication [Unknown]

NARRATIVE: CASE EVENT DATE: 20240220
